FAERS Safety Report 18969403 (Version 1)
Quarter: 2021Q1

REPORT INFORMATION
  Report Type: Spontaneous
  Country: CA (occurrence: CA)
  Receive Date: 20210304
  Receipt Date: 20210304
  Transmission Date: 20210420
  Serious: Yes (Other)
  Sender: FDA-Public Use
  Company Number: CA-PFIZER INC-2021200328

PATIENT
  Age: 43 Year
  Sex: Female
  Weight: 103 kg

DRUGS (1)
  1. TRAZIMERA [Suspect]
     Active Substance: TRASTUZUMAB-QYYP
     Indication: BREAST CANCER
     Dosage: 802 MG, UNK
     Route: 042

REACTIONS (3)
  - Nausea [Unknown]
  - Abdominal pain [Unknown]
  - Hyperhidrosis [Unknown]
